FAERS Safety Report 7356603-8 (Version None)
Quarter: 2011Q1

REPORT INFORMATION
  Report Type: 
  Country: None (occurrence: None)
  Receive Date: 20110316
  Receipt Date: 20110303
  Transmission Date: 20110831
  Serious: Yes (Hospitalization, Other)
  Sender: FDA-Public Use
  Company Number: PHHY2010JP71721

PATIENT
  Age: 80 Year
  Sex: Female

DRUGS (3)
  1. LIPITOR [Concomitant]
     Dosage: 5 MG, UNK
     Route: 048
     Dates: start: 20060412
  2. RASILEZ [Suspect]
     Indication: HYPERTENSION
     Dosage: 150 MG, UNK
     Route: 048
     Dates: start: 20100924, end: 20101021
  3. NATRIX [Concomitant]
     Dosage: 1 MG, UNK
     Route: 048
     Dates: start: 20090223

REACTIONS (7)
  - HEPATIC ENZYME INCREASED [None]
  - FATIGUE [None]
  - JAUNDICE [None]
  - ANIMAL BITE [None]
  - HEPATITIS [None]
  - OCULAR ICTERUS [None]
  - HEPATIC CYST [None]
